FAERS Safety Report 4932662-4 (Version None)
Quarter: 2006Q1

REPORT INFORMATION
  Report Type: 
  Country: None (occurrence: None)
  Receive Date: 20060301
  Receipt Date: 20060222
  Transmission Date: 20060701
  Serious: Yes (Life-Threatening, Hospitalization, Disabling, Other)
  Sender: FDA-Public Use
  Company Number: 200610962BWH

PATIENT
  Age: 62 Year
  Sex: Male
  Weight: 98 kg

DRUGS (4)
  1. SORAFENIB [Suspect]
     Indication: METASTATIC RENAL CELL CARCINOMA
     Dosage: 400 MG, QD, ORAL
     Route: 048
     Dates: start: 20050808, end: 20060121
  2. AVANDIA [Concomitant]
  3. FLOMAX [Concomitant]
  4. ZOMETA [Concomitant]

REACTIONS (13)
  - ALANINE AMINOTRANSFERASE INCREASED [None]
  - BETA HAEMOLYTIC STREPTOCOCCAL INFECTION [None]
  - BLOOD ALBUMIN DECREASED [None]
  - BLOOD CREATINE PHOSPHOKINASE INCREASED [None]
  - BLOOD CREATININE INCREASED [None]
  - BLOOD UREA INCREASED [None]
  - CULTURE POSITIVE [None]
  - HYDRONEPHROSIS [None]
  - INFLUENZA [None]
  - MASTOIDITIS [None]
  - OTITIS MEDIA [None]
  - SINUSITIS [None]
  - SUBDURAL HAEMATOMA [None]
